FAERS Safety Report 23780557 (Version 3)
Quarter: 2025Q1

REPORT INFORMATION
  Report Type: Report from Study
  Country: CA (occurrence: CA)
  Receive Date: 20240425
  Receipt Date: 20250217
  Transmission Date: 20250409
  Serious: Yes (Hospitalization)
  Sender: ABBVIE
  Company Number: CA-ABBVIE-4716891

PATIENT
  Age: 71 Year
  Sex: Male

DRUGS (61)
  1. VENCLEXTA [Suspect]
     Active Substance: VENETOCLAX
     Indication: Acute myeloid leukaemia
     Route: 048
     Dates: start: 20230925, end: 20231016
  2. VENCLEXTA [Suspect]
     Active Substance: VENETOCLAX
     Indication: Acute myeloid leukaemia
     Route: 048
     Dates: start: 20230919, end: 20230919
  3. VENCLEXTA [Suspect]
     Active Substance: VENETOCLAX
     Indication: Acute myeloid leukaemia
     Route: 048
     Dates: start: 20230225, end: 20230225
  4. VENCLEXTA [Suspect]
     Active Substance: VENETOCLAX
     Indication: Acute myeloid leukaemia
     Route: 048
     Dates: start: 20230227, end: 20230320
  5. VENCLEXTA [Suspect]
     Active Substance: VENETOCLAX
     Indication: Acute myeloid leukaemia
     Route: 048
     Dates: start: 20230921, end: 20230922
  6. VENCLEXTA [Suspect]
     Active Substance: VENETOCLAX
     Indication: Acute myeloid leukaemia
     Route: 048
     Dates: start: 20230918, end: 20230918
  7. VENCLEXTA [Suspect]
     Active Substance: VENETOCLAX
     Indication: Acute myeloid leukaemia
     Route: 048
     Dates: start: 20230226, end: 20230226
  8. VENCLEXTA [Suspect]
     Active Substance: VENETOCLAX
     Indication: Acute myeloid leukaemia
     Route: 048
     Dates: start: 20230224, end: 20230224
  9. VENCLEXTA [Suspect]
     Active Substance: VENETOCLAX
     Indication: Acute myeloid leukaemia
     Route: 048
     Dates: start: 20230920, end: 20230920
  10. AZACITIDINE [Suspect]
     Active Substance: AZACITIDINE
     Indication: Acute myeloid leukaemia
     Route: 048
     Dates: start: 20230224, end: 20230302
  11. AZACITIDINE [Suspect]
     Active Substance: AZACITIDINE
     Indication: Acute myeloid leukaemia
     Route: 048
     Dates: start: 20230925, end: 20230926
  12. AZACITIDINE [Suspect]
     Active Substance: AZACITIDINE
     Indication: Acute myeloid leukaemia
     Route: 048
     Dates: start: 20230918, end: 20230922
  13. Covid-19 Vaccine [Concomitant]
     Indication: COVID-19 immunisation
     Route: 030
  14. ALLOPURINOL [Concomitant]
     Active Substance: ALLOPURINOL
     Indication: Hyperuricaemia
     Route: 048
     Dates: start: 20230215, end: 20230303
  15. HYDREA [Concomitant]
     Active Substance: HYDROXYUREA
     Indication: Leukocytosis
     Dates: start: 20230215, end: 20230221
  16. HYDREA [Concomitant]
     Active Substance: HYDROXYUREA
     Indication: Leukocytosis
     Dates: start: 20230222, end: 20230224
  17. REACTINE [Concomitant]
     Indication: Pruritus
     Route: 048
     Dates: start: 20230215, end: 20230303
  18. TYLENOL [Concomitant]
     Active Substance: ACETAMINOPHEN
     Indication: Pain
     Route: 048
     Dates: start: 2023
  19. FRAGMIN [Concomitant]
     Active Substance: DALTEPARIN SODIUM
     Indication: Superficial vein thrombosis
     Dosage: DOSE- 5000 U
     Route: 058
     Dates: start: 20230215, end: 20230221
  20. FRAGMIN [Concomitant]
     Active Substance: DALTEPARIN SODIUM
     Indication: Superficial vein thrombosis
     Dosage: DOSE- 7500 U
     Route: 058
     Dates: start: 20230222, end: 20230303
  21. CEFTNAXONE [Concomitant]
     Indication: Pneumonia
     Dosage: ROUTE: INTRAVENOUS
     Dates: start: 20230215, end: 20230217
  22. AZYTHROMYCINE [Concomitant]
     Indication: Pneumonia
     Route: 048
     Dates: start: 20230215, end: 20230219
  23. AZYTHROMYCINE [Concomitant]
     Indication: Pneumonia
     Route: 048
     Dates: start: 20230314, end: 20230318
  24. PIPERACILLIN SODIUM\TAZOBACTAM SODIUM [Concomitant]
     Active Substance: PIPERACILLIN SODIUM\TAZOBACTAM SODIUM
     Indication: Pneumonia
     Dates: start: 20230218, end: 20230301
  25. PIPERACILLIN SODIUM\TAZOBACTAM SODIUM [Concomitant]
     Active Substance: PIPERACILLIN SODIUM\TAZOBACTAM SODIUM
     Indication: Pneumonia
     Dates: start: 20230314, end: 20230315
  26. PIPERACILLIN SODIUM\TAZOBACTAM SODIUM [Concomitant]
     Active Substance: PIPERACILLIN SODIUM\TAZOBACTAM SODIUM
     Indication: Pneumonia
     Dates: start: 20230321, end: 20230321
  27. PIPERACILLIN SODIUM\TAZOBACTAM SODIUM [Concomitant]
     Active Substance: PIPERACILLIN SODIUM\TAZOBACTAM SODIUM
     Indication: Pneumonia
     Dates: start: 20230403, end: 20230419
  28. PIPERACILLIN SODIUM\TAZOBACTAM SODIUM [Concomitant]
     Active Substance: PIPERACILLIN SODIUM\TAZOBACTAM SODIUM
     Indication: Pneumonia
     Dates: start: 20230328, end: 20230328
  29. DILAUDID [Concomitant]
     Active Substance: HYDROMORPHONE HYDROCHLORIDE
     Indication: Pain
     Route: 048
     Dates: start: 20230216, end: 20230301
  30. DILAUDID [Concomitant]
     Active Substance: HYDROMORPHONE HYDROCHLORIDE
     Indication: Pain
     Route: 048
     Dates: start: 20230301
  31. DESLORATADINE [Concomitant]
     Active Substance: DESLORATADINE
     Indication: Pruritus
     Route: 048
     Dates: start: 20230303
  32. CODEINE [Concomitant]
     Active Substance: CODEINE
     Indication: Influenza like illness
     Route: 048
     Dates: start: 20230221
  33. DICLOTENAC GEL [Concomitant]
     Indication: Superficial vein thrombosis
     Route: 061
     Dates: start: 20230222, end: 20230303
  34. SOLU-CORTEF [Concomitant]
     Active Substance: HYDROCORTISONE SODIUM SUCCINATE
     Indication: Septic shock
     Dates: start: 20230327, end: 20230328
  35. POLYETHYLENE GLYCOL 3350 [Concomitant]
     Active Substance: POLYETHYLENE GLYCOL 3350
     Indication: Constipation prophylaxis
     Route: 048
     Dates: start: 20230218
  36. NYSTATIN [Concomitant]
     Active Substance: NYSTATIN
     Indication: Antifungal prophylaxis
     Dates: start: 20230226
  37. ALBUTEROL [Concomitant]
     Active Substance: ALBUTEROL
     Indication: Pulmonary fibrosis
     Route: 055
     Dates: start: 20230310
  38. SPIRIRA [Concomitant]
     Indication: Pulmonary fibrosis
     Dosage: 2.5 MCG
     Route: 055
     Dates: start: 20230224
  39. DOXYCYCLINE [Concomitant]
     Active Substance: DOXYCYCLINE
     Indication: Pneumonia
     Dosage: DOSAGE: 100 MG
     Route: 048
     Dates: start: 20230310, end: 20230316
  40. AMOXICILINE [Concomitant]
     Indication: Pneumonia
     Route: 048
     Dates: start: 20230310, end: 20230314
  41. AMOXICILINE [Concomitant]
     Indication: Pneumonia
     Route: 048
     Dates: start: 20230314, end: 20230321
  42. FILGRASTRIM [Concomitant]
     Indication: Neutrophil count decreased
     Dosage: DOSE:480 MCG
     Dates: start: 20230331, end: 20230424
  43. NS BOLUS [Concomitant]
     Indication: Septic shock
     Dates: start: 20230327, end: 20230327
  44. NS BOLUS [Concomitant]
     Indication: Septic shock
     Dates: start: 20230327, end: 20230327
  45. LEVOPHED [Concomitant]
     Active Substance: NOREPINEPHRINE BITARTRATE
     Indication: Septic shock
     Dates: start: 20230327, end: 20230327
  46. DAPTOMYCIN [Concomitant]
     Active Substance: DAPTOMYCIN
     Indication: Post procedural infection
     Dosage: ROUTE : INTRAVENOUS
     Dates: start: 20230327, end: 20230328
  47. CLINDAMYCIN [Concomitant]
     Active Substance: CLINDAMYCIN
     Indication: Post procedural infection
     Dates: start: 20230327, end: 20230401
  48. MEROPENEM [Concomitant]
     Active Substance: MEROPENEM
     Indication: Post procedural infection
     Dates: start: 20230328, end: 20230328
  49. MEROPENEM [Concomitant]
     Active Substance: MEROPENEM
     Indication: Post procedural infection
     Dates: start: 20230329, end: 20230331
  50. MEROPENEM [Concomitant]
     Active Substance: MEROPENEM
     Indication: Post procedural infection
     Dates: start: 20230331, end: 20230403
  51. VANCOMYCIN [Concomitant]
     Active Substance: VANCOMYCIN
     Indication: Post procedural infection
     Dates: start: 20230330, end: 20230330
  52. VANCOMYCIN [Concomitant]
     Active Substance: VANCOMYCIN
     Indication: Post procedural infection
     Dates: start: 20230331, end: 20230331
  53. AMPHOTERICIN B [Concomitant]
     Active Substance: AMPHOTERICIN B
     Indication: Post procedural infection
     Dosage: ROUTE : INTRAVENOUS
     Dates: start: 20230331, end: 20230401
  54. TIGECYCLINE [Concomitant]
     Active Substance: TIGECYCLINE
     Indication: Post procedural infection
     Dates: start: 20230331, end: 20230331
  55. TIGECYCLINE [Concomitant]
     Active Substance: TIGECYCLINE
     Indication: Post procedural infection
     Dates: start: 20230331, end: 20230331
  56. TIGECYCLINE [Concomitant]
     Active Substance: TIGECYCLINE
     Indication: Post procedural infection
     Dosage: ROUTE :INTRAVENOUS ?FREQUENCY: EACH 12 HOURS
     Dates: start: 20230401, end: 20230403
  57. CLAVULANIC ACID [Concomitant]
     Active Substance: CLAVULANIC ACID
     Indication: Pneumonia
     Route: 048
     Dates: start: 20230310, end: 20230314
  58. POSACONAZOLE [Concomitant]
     Active Substance: POSACONAZOLE
     Indication: Antifungal prophylaxis
     Route: 048
     Dates: start: 20230227
  59. POSACONAZOLE [Concomitant]
     Active Substance: POSACONAZOLE
     Indication: Antifungal prophylaxis
     Route: 048
     Dates: start: 20230314, end: 20230321
  60. CIPROFLOXACIN [Concomitant]
     Active Substance: CIPROFLOXACIN
     Indication: Post procedural infection
     Route: 048
     Dates: start: 20230419, end: 20230501
  61. K-DUR [Concomitant]
     Active Substance: POTASSIUM CHLORIDE
     Indication: Hypokalaemia
     Dosage: FREQUENCY : 60 MEQ
     Route: 048
     Dates: start: 20231030, end: 20231031

REACTIONS (1)
  - Haemoptysis [Recovered/Resolved]

NARRATIVE: CASE EVENT DATE: 20230314
